FAERS Safety Report 8828419 (Version 1)
Quarter: 2012Q4

REPORT INFORMATION
  Report Type: 
  Country: US (occurrence: US)
  Receive Date: 20121005
  Receipt Date: 20121005
  Transmission Date: 20130627
  Serious: Yes (Hospitalization)
  Sender: FDA-Public Use
  Company Number: US-BAYER-2012-103005

PATIENT
  Age: 45 Year
  Sex: Female
  Weight: 83.9 kg

DRUGS (7)
  1. OCELLA [Suspect]
     Indication: HOT FLUSH
  2. YASMIN [Suspect]
     Dosage: UNK
     Dates: start: 20090915, end: 20101216
  3. FLUTICASONE [Concomitant]
  4. ATENOLOL [Concomitant]
     Indication: SUPRAVENTRICULAR TACHYCARDIA
     Dosage: 25 mg, 1/2 tablet, BID
     Route: 048
  5. FLECAINIDE ACETATE [Concomitant]
     Dosage: 50 mg, UNK
     Dates: start: 20091023
  6. HYDROCODONE W/ACETAMINOPHEN [Concomitant]
     Indication: PAIN
     Dosage: 5-500 mg
     Dates: start: 20091023
  7. NORA-BE [Concomitant]
     Dosage: UNK
     Dates: start: 20100123, end: 20100411

REACTIONS (1)
  - Deep vein thrombosis [None]
